FAERS Safety Report 25217646 (Version 1)
Quarter: 2025Q2

REPORT INFORMATION
  Report Type: Spontaneous
  Country: US (occurrence: US)
  Receive Date: 20250420
  Receipt Date: 20250420
  Transmission Date: 20250717
  Serious: No
  Sender: ROCHE
  Company Number: US-ROCHE-10000257064

PATIENT
  Sex: Female

DRUGS (4)
  1. XOLAIR [Suspect]
     Active Substance: OMALIZUMAB
     Indication: Asthma
     Route: 058
     Dates: start: 202408
  2. EPINEPHRINE AUTO-INJ [Concomitant]
  3. ONDA VISETRON HCL [Concomitant]
  4. TYMLOS PF PEN [Concomitant]
     Indication: Senile osteoporosis

REACTIONS (4)
  - Peripheral swelling [Unknown]
  - Pruritus [Unknown]
  - Feeling hot [Unknown]
  - Rash [Unknown]
